FAERS Safety Report 9116683 (Version 2)
Quarter: 2013Q2

REPORT INFORMATION
  Report Type: Spontaneous
  Country: US (occurrence: US)
  Receive Date: 20130225
  Receipt Date: 20130522
  Transmission Date: 20140414
  Serious: Yes (Death)
  Sender: FDA-Public Use
  Company Number: US-ASTELLAS-2013US001962

PATIENT
  Age: 64 Year
  Sex: Male

DRUGS (2)
  1. PROGRAF [Suspect]
     Indication: RENAL TRANSPLANT
     Dosage: 0.5 MG, BID
     Route: 048
     Dates: start: 20110301, end: 20130216
  2. PROGRAF [Suspect]
     Dosage: 1 MG, QID
     Route: 048
     Dates: start: 20110301, end: 20130216

REACTIONS (1)
  - Myocardial infarction [Fatal]
